FAERS Safety Report 12264762 (Version 1)
Quarter: 2016Q2

REPORT INFORMATION
  Report Type: Spontaneous
  Country: US (occurrence: US)
  Receive Date: 20160413
  Receipt Date: 20160413
  Transmission Date: 20160815
  Serious: No
  Sender: FDA-Public Use
  Company Number: US-JNJFOC-20160317746

PATIENT
  Age: 82 Year
  Sex: Female
  Weight: 55.79 kg

DRUGS (4)
  1. WOMENS ROGAINE UNSCENTED [Suspect]
     Active Substance: MINOXIDIL
     Indication: ABDOMINAL PAIN
     Dosage: LITTLE MORE THAN 1/2 CAPFUL
     Route: 061
     Dates: start: 20160101, end: 20160220
  2. WOMENS ROGAINE UNSCENTED [Suspect]
     Active Substance: MINOXIDIL
     Indication: ALOPECIA
     Dosage: LITTLE MORE THAN 1/2 CAPFUL
     Route: 061
     Dates: start: 20160101, end: 20160220
  3. SYNTHROID [Concomitant]
     Active Substance: LEVOTHYROXINE SODIUM
     Indication: MENSTRUAL DISORDER
     Route: 065
  4. PREMARIN [Concomitant]
     Active Substance: ESTROGENS, CONJUGATED
     Indication: HYSTERECTOMY
     Route: 065

REACTIONS (9)
  - Product use issue [Recovered/Resolved]
  - Headache [Recovered/Resolved]
  - Off label use [Recovered/Resolved]
  - Nausea [Recovered/Resolved]
  - Overdose [Recovered/Resolved]
  - Vertigo [Recovered/Resolved]
  - Nasopharyngitis [Recovered/Resolved]
  - Dyskinesia [Recovered/Resolved]
  - Dizziness [Recovered/Resolved]

NARRATIVE: CASE EVENT DATE: 20160220
